FAERS Safety Report 24551826 (Version 1)
Quarter: 2024Q4

REPORT INFORMATION
  Report Type: Spontaneous
  Country: US (occurrence: US)
  Receive Date: 20241026
  Receipt Date: 20241026
  Transmission Date: 20250115
  Serious: Yes (Other)
  Sender: Kenvue
  Company Number: US-KENVUE-20241031007

PATIENT
  Age: 4 Decade
  Sex: Female

DRUGS (8)
  1. CETIRIZINE HYDROCHLORIDE [Suspect]
     Active Substance: CETIRIZINE HYDROCHLORIDE
     Indication: Migraine
     Dosage: 10 MILLIGRAM
     Route: 048
     Dates: start: 202404
  2. TYLENOL [Suspect]
     Active Substance: ACETAMINOPHEN
     Indication: Migraine
     Dosage: 500 MILLIGRAM
     Route: 048
     Dates: start: 202404
  3. BENADRYL [Suspect]
     Active Substance: DIPHENHYDRAMINE HYDROCHLORIDE
     Indication: Migraine
     Dosage: 25-50 MG
     Route: 048
     Dates: start: 202404
  4. TYLENOL SINUS PLUS HEADACHE DAY [Suspect]
     Active Substance: ACETAMINOPHEN\PHENYLEPHRINE HYDROCHLORIDE
     Indication: Migraine
     Dosage: 350 MG PRN
     Route: 048
  5. LABETALOL [Suspect]
     Active Substance: LABETALOL
     Indication: Product used for unknown indication
     Dosage: 100 MILLIGRAM
     Route: 048
     Dates: start: 20240308
  6. LABETALOL [Suspect]
     Active Substance: LABETALOL
     Dosage: 200 MILLIGRAM, ONCE A DAY
     Route: 048
     Dates: start: 20240918
  7. AMOXICILLIN [Suspect]
     Active Substance: AMOXICILLIN
     Indication: Product used for unknown indication
     Dosage: 1750 MILLIGRAM
     Route: 065
     Dates: start: 20240605
  8. ASPIRIN [Concomitant]
     Active Substance: ASPIRIN
     Indication: Hypertension
     Dosage: UNK
     Route: 048
     Dates: start: 20240503, end: 202409

REACTIONS (5)
  - Pre-eclampsia [Not Recovered/Not Resolved]
  - Exposure during pregnancy [Unknown]
  - Product use in unapproved indication [Unknown]
  - Incorrect dose administered [Unknown]
  - Inappropriate schedule of product administration [Unknown]

NARRATIVE: CASE EVENT DATE: 20240401
